FAERS Safety Report 9210498 (Version 1)
Quarter: 2013Q2

REPORT INFORMATION
  Report Type: Spontaneous
  Country: US (occurrence: US)
  Receive Date: 20130404
  Receipt Date: 20130404
  Transmission Date: 20140414
  Serious: No
  Sender: FDA-Public Use
  Company Number: US-PFIZER INC-2013107334

PATIENT
  Sex: Female
  Weight: 68.03 kg

DRUGS (2)
  1. RELPAX [Suspect]
     Indication: MIGRAINE
     Dosage: UNK
  2. RELPAX [Suspect]
     Dosage: UNK, AS NEEDED
     Dates: start: 2012

REACTIONS (2)
  - Drug ineffective [Unknown]
  - Throat tightness [Recovered/Resolved]
